FAERS Safety Report 10434666 (Version 1)
Quarter: 2014Q3

REPORT INFORMATION
  Report Type: Spontaneous
  Country: US (occurrence: US)
  Receive Date: 20140906
  Receipt Date: 20140906
  Transmission Date: 20150326
  Serious: Yes (Other)
  Sender: FDA-Public Use
  Company Number: US-ACCORD-025747

PATIENT
  Age: 40 Year
  Sex: Female

DRUGS (2)
  1. TACROLIMUS. [Suspect]
     Active Substance: TACROLIMUS
     Indication: LIP DISORDER
     Dosage: TWO WEEK OF TWICE DAILY.
     Route: 061
  2. PIMECROLIMUS [Suspect]
     Active Substance: PIMECROLIMUS
     Indication: BURNING SENSATION
     Route: 061

REACTIONS (2)
  - Microcytic anaemia [Unknown]
  - Macule [Not Recovered/Not Resolved]
